FAERS Safety Report 24000528 (Version 1)
Quarter: 2024Q2

REPORT INFORMATION
  Report Type: Spontaneous
  Country: FR (occurrence: FR)
  Receive Date: 20240621
  Receipt Date: 20240621
  Transmission Date: 20240716
  Serious: Yes (Other)
  Sender: FDA-Public Use
  Company Number: FR-PHARMAMAR-2024PM000221

PATIENT

DRUGS (4)
  1. ZEPZELCA [Suspect]
     Active Substance: LURBINECTEDIN
     Indication: Product used for unknown indication
     Dosage: 4 MILLIGRAM, TOTAL DOSE 4.93 MILLIGRAM, CYCLE 1 DAY 1
     Route: 042
     Dates: start: 20240118
  2. ZEPZELCA [Suspect]
     Active Substance: LURBINECTEDIN
     Dosage: 4.4 MILLIGRAM, CYCLE 3 DAY1
     Dates: start: 20240311, end: 20240311
  3. ZEPZELCA [Suspect]
     Active Substance: LURBINECTEDIN
     Dosage: 3.8 MILLIGRAM, CYCLE 4 DAY 1
     Dates: start: 20240402, end: 20240402
  4. ARANESP [Concomitant]
     Active Substance: DARBEPOETIN ALFA
     Indication: Product used for unknown indication

REACTIONS (2)
  - Thrombocytopenia [Unknown]
  - Anaemia [Unknown]
